FAERS Safety Report 12432518 (Version 2)
Quarter: 2016Q2

REPORT INFORMATION
  Report Type: Spontaneous
  Country: US (occurrence: US)
  Receive Date: 20160603
  Receipt Date: 20160627
  Transmission Date: 20160815
  Serious: Yes (Other)
  Sender: FDA-Public Use
  Company Number: US-TEVA-663275USA

PATIENT
  Sex: Female

DRUGS (2)
  1. ZECUITY [Suspect]
     Active Substance: SUMATRIPTAN SUCCINATE
     Route: 062
     Dates: start: 20160506
  2. ZECUITY [Suspect]
     Active Substance: SUMATRIPTAN SUCCINATE
     Indication: MIGRAINE
     Route: 062
     Dates: start: 20160417

REACTIONS (7)
  - Application site burn [Recovered/Resolved with Sequelae]
  - Application site scar [Recovered/Resolved with Sequelae]
  - Application site paraesthesia [Recovered/Resolved]
  - Application site scab [Recovering/Resolving]
  - Application site pruritus [Recovering/Resolving]
  - Burning sensation [Recovered/Resolved]
  - Application site warmth [Recovered/Resolved]

NARRATIVE: CASE EVENT DATE: 20160417
